FAERS Safety Report 21593076 (Version 2)
Quarter: 2022Q4

REPORT INFORMATION
  Report Type: Report from Study
  Country: US (occurrence: US)
  Receive Date: 20221114
  Receipt Date: 20221117
  Transmission Date: 20230113
  Serious: Yes (Death, Other)
  Sender: FDA-Public Use
  Company Number: US-ABBVIE-4199126

PATIENT
  Age: 74 Year
  Sex: Male

DRUGS (1)
  1. HUMIRA [Suspect]
     Active Substance: ADALIMUMAB
     Indication: Rheumatoid arthritis
     Dosage: CITRATE FREE STRENGTH 40MG
     Route: 058

REACTIONS (2)
  - Death [Fatal]
  - Rehabilitation therapy [Unknown]

NARRATIVE: CASE EVENT DATE: 20221030
